FAERS Safety Report 9109636 (Version 1)
Quarter: 2013Q1

REPORT INFORMATION
  Report Type: Spontaneous
  Country: FR (occurrence: FR)
  Receive Date: 20130222
  Receipt Date: 20130222
  Transmission Date: 20140127
  Serious: Yes (Other)
  Sender: FDA-Public Use
  Company Number: FR-UCBSA-078739

PATIENT
  Age: 66 Year
  Sex: Male

DRUGS (8)
  1. CIMZIA [Suspect]
     Indication: ANKYLOSING SPONDYLITIS
     Route: 058
     Dates: start: 2008
  2. CIMZIA [Suspect]
     Indication: CROHN^S DISEASE
     Route: 058
     Dates: start: 2008
  3. CIMZIA [Suspect]
     Indication: ANKYLOSING SPONDYLITIS
     Route: 058
  4. CIMZIA [Suspect]
     Indication: CROHN^S DISEASE
     Route: 058
  5. CORTANCYL [Concomitant]
     Indication: CROHN^S DISEASE
     Route: 048
  6. CORTANCYL [Concomitant]
     Indication: ANKYLOSING SPONDYLITIS
     Route: 048
  7. ZELITREX [Concomitant]
     Indication: HERPES ZOSTER
     Route: 048
  8. ZELITREX [Concomitant]
     Indication: GENITAL HERPES
     Route: 048

REACTIONS (3)
  - Herpes zoster [Not Recovered/Not Resolved]
  - Genital herpes [Not Recovered/Not Resolved]
  - Tinnitus [Not Recovered/Not Resolved]
